FAERS Safety Report 10465095 (Version 1)
Quarter: 2014Q3

REPORT INFORMATION
  Report Type: Spontaneous
  Country: US (occurrence: US)
  Receive Date: 20140919
  Receipt Date: 20140919
  Transmission Date: 20150326
  Serious: Yes (Other)
  Sender: FDA-Public Use
  Company Number: CHPA2014US012424

PATIENT
  Age: 71 Year
  Sex: Female

DRUGS (1)
  1. CONTROL STEP 1 21MG [Suspect]
     Active Substance: NICOTINE
     Indication: SMOKING CESSATION THERAPY
     Dosage: 1 DF, UNK
     Route: 062
     Dates: start: 2014, end: 2014

REACTIONS (5)
  - Condition aggravated [Unknown]
  - Sinusitis [Unknown]
  - Application site rash [Unknown]
  - Application site pruritus [Unknown]
  - Sinus congestion [Unknown]

NARRATIVE: CASE EVENT DATE: 20140917
